FAERS Safety Report 10256205 (Version 1)
Quarter: 2014Q2

REPORT INFORMATION
  Report Type: Spontaneous
  Country: DE (occurrence: DE)
  Receive Date: 20140624
  Receipt Date: 20140624
  Transmission Date: 20141212
  Serious: Yes (Hospitalization)
  Sender: FDA-Public Use
  Company Number: DE-ZOGENIX, INC.-2012ZX000105

PATIENT
  Age: 4 Day
  Sex: Female
  Weight: 2.67 kg

DRUGS (1)
  1. SUMATRIPTAN INJECTION (SUMATRIPTAN) (6 MG) [Suspect]

REACTIONS (3)
  - Apnoea [Not Recovered/Not Resolved]
  - Foetal exposure during pregnancy [Unknown]
  - Bradycardia [Not Recovered/Not Resolved]
